FAERS Safety Report 18218548 (Version 1)
Quarter: 2020Q3

REPORT INFORMATION
  Report Type: Spontaneous
  Country: US (occurrence: US)
  Receive Date: 20200831
  Receipt Date: 20200831
  Transmission Date: 20201103
  Serious: No
  Sender: FDA-Public Use
  Company Number: None

PATIENT
  Age: 81 Year
  Sex: Male

DRUGS (1)
  1. GRALISE [Suspect]
     Active Substance: GABAPENTIN
     Indication: PAIN
     Route: 048
     Dates: start: 20161005, end: 20161102

REACTIONS (6)
  - Anal incontinence [None]
  - Dizziness [None]
  - Syncope [None]
  - Hyperhidrosis [None]
  - Urinary incontinence [None]
  - Loss of consciousness [None]

NARRATIVE: CASE EVENT DATE: 20161102
